FAERS Safety Report 25462347 (Version 1)
Quarter: 2025Q2

REPORT INFORMATION
  Report Type: Spontaneous
  Country: CN (occurrence: CN)
  Receive Date: 20250620
  Receipt Date: 20250620
  Transmission Date: 20250717
  Serious: Yes (Hospitalization)
  Sender: DR REDDYS
  Company Number: None

PATIENT
  Age: 66 Year
  Sex: Female
  Weight: 52 kg

DRUGS (2)
  1. OLANZAPINE [Suspect]
     Active Substance: OLANZAPINE
     Indication: Psychotic symptom
     Dosage: 15MG,QD
     Route: 048
     Dates: start: 20250422, end: 20250526
  2. VALPROATE MAGNESIUM [Concomitant]
     Active Substance: VALPROATE MAGNESIUM
     Indication: Affect lability
     Dosage: 0.5G,BID
     Route: 048
     Dates: start: 20250422, end: 20250523

REACTIONS (2)
  - Oedema [Recovered/Resolved]
  - Dyspnoea [Recovered/Resolved]

NARRATIVE: CASE EVENT DATE: 20250515
